FAERS Safety Report 14963105 (Version 1)
Quarter: 2018Q2

REPORT INFORMATION
  Report Type: Spontaneous
  Country: US (occurrence: US)
  Receive Date: 20180601
  Receipt Date: 20180601
  Transmission Date: 20180711
  Serious: No
  Sender: FDA-Public Use
  Company Number: PHHY2018US012994

PATIENT
  Age: 87 Year
  Sex: Female

DRUGS (1)
  1. GENTEAL MODERATE TO SEVERE GEL DROPS [Suspect]
     Active Substance: CARBOXYMETHYLCELLULOSE SODIUM\HYPROMELLOSES
     Indication: DRY EYE
     Dosage: UNK
     Route: 047
     Dates: start: 20180516

REACTIONS (2)
  - Eye pain [Not Recovered/Not Resolved]
  - Eye irritation [Not Recovered/Not Resolved]

NARRATIVE: CASE EVENT DATE: 20180516
